FAERS Safety Report 19471546 (Version 1)
Quarter: 2021Q2

REPORT INFORMATION
  Report Type: Spontaneous
  Country: US (occurrence: US)
  Receive Date: 20210628
  Receipt Date: 20210628
  Transmission Date: 20210717
  Serious: No
  Sender: FDA-Public Use
  Company Number: None

PATIENT
  Sex: Female

DRUGS (1)
  1. SIMPONI [Suspect]
     Active Substance: GOLIMUMAB
     Indication: RHEUMATOID ARTHRITIS
     Dosage: OTHER DOSE:50MG/0.5ML;?
     Route: 058
     Dates: start: 20190502

REACTIONS (5)
  - Post procedural complication [None]
  - COVID-19 immunisation [None]
  - Hypoaesthesia [None]
  - Paraesthesia [None]
  - Vaccination complication [None]
